FAERS Safety Report 13782382 (Version 2)
Quarter: 2017Q3

REPORT INFORMATION
  Report Type: Spontaneous
  Country: US (occurrence: US)
  Receive Date: 20170724
  Receipt Date: 20170918
  Transmission Date: 20171127
  Serious: Yes (Other)
  Sender: FDA-Public Use
  Company Number: US-PFIZER INC-2017318062

PATIENT
  Age: 60 Year
  Sex: Female

DRUGS (1)
  1. GABAPENTIN. [Suspect]
     Active Substance: GABAPENTIN
     Dosage: 100 MG, 3X/DAY
     Route: 048
     Dates: start: 20131230

REACTIONS (5)
  - Parkinson^s disease [Unknown]
  - Drug hypersensitivity [Unknown]
  - Suicidal ideation [Unknown]
  - Homicidal ideation [Unknown]
  - Tremor [Unknown]
